FAERS Safety Report 5870091-X (Version None)
Quarter: 2008Q3

REPORT INFORMATION
  Report Type: 
  Country: None (occurrence: None)
  Receive Date: 20080902
  Receipt Date: 20080821
  Transmission Date: 20090109
  Serious: Yes (Hospitalization)
  Sender: FDA-Public Use
  Company Number: 237973J08USA

PATIENT
  Age: 23 Year
  Sex: Female
  Weight: 136.0791 kg

DRUGS (2)
  1. REBIF [Suspect]
     Indication: MULTIPLE SCLEROSIS
     Dosage: 44 MCG, 3 IN 1 WEEKS, SUBCUTANEOUS
     Route: 058
     Dates: start: 20070820
  2. IBUPROFEN [Concomitant]

REACTIONS (7)
  - ABDOMINAL PAIN [None]
  - ANOREXIA [None]
  - CONDITION AGGRAVATED [None]
  - ENDOMETRIOSIS [None]
  - MULTIPLE SCLEROSIS [None]
  - UTERINE INFECTION [None]
  - WEIGHT DECREASED [None]
